FAERS Safety Report 9626841 (Version 2)
Quarter: 2014Q3

REPORT INFORMATION
  Report Type: Spontaneous
  Country: DK (occurrence: DK)
  Receive Date: 20131016
  Receipt Date: 20140916
  Transmission Date: 20150326
  Serious: Yes (Death, Life-Threatening, Hospitalization)
  Sender: FDA-Public Use
  Company Number: DK-PFIZER INC-2013292898

PATIENT
  Age: 56 Year
  Sex: Female

DRUGS (3)
  1. AKARIN [Concomitant]
     Active Substance: CITALOPRAM HYDROBROMIDE
     Indication: DEPRESSION
     Dosage: UNK
     Route: 048
     Dates: start: 200405
  2. ZARATOR [Suspect]
     Active Substance: ATORVASTATIN CALCIUM
     Indication: HYPERCHOLESTEROLAEMIA
     Dosage: UNK
     Route: 048
     Dates: start: 200402, end: 20120127
  3. ELTROXIN [Concomitant]
     Active Substance: LEVOTHYROXINE
     Indication: HYPOTHYROIDISM
     Dosage: UNK
     Route: 048
     Dates: start: 200407

REACTIONS (7)
  - Depression [Unknown]
  - Hepatic cirrhosis [Fatal]
  - Haemolytic anaemia [Unknown]
  - Hypothyroidism [Unknown]
  - Hepatic enzyme increased [Recovering/Resolving]
  - Syncope [Unknown]
  - Insomnia [Unknown]

NARRATIVE: CASE EVENT DATE: 200404
